FAERS Safety Report 5162518-6 (Version None)
Quarter: 2006Q4

REPORT INFORMATION
  Report Type: 
  Country: None (occurrence: None)
  Receive Date: 20061121
  Receipt Date: 20061106
  Transmission Date: 20070319
  Serious: Yes (Other)
  Sender: FDA-Public Use
  Company Number: US-2006-032587

PATIENT
  Age: 44 Year
  Sex: Female

DRUGS (1)
  1. BETASERON [Suspect]
     Indication: MULTIPLE SCLEROSIS
     Dosage: 2 MIU, EVERY 2D, SUBCUTANEOUS
     Route: 058
     Dates: start: 20061009

REACTIONS (5)
  - ANAPHYLACTIC SHOCK [None]
  - ASTHMA [None]
  - CONDITION AGGRAVATED [None]
  - EYE SWELLING [None]
  - PARAESTHESIA ORAL [None]
